FAERS Safety Report 8050673-X (Version None)
Quarter: 2012Q1

REPORT INFORMATION
  Report Type: 
  Country: None (occurrence: None)
  Receive Date: 20120117
  Receipt Date: 20120117
  Transmission Date: 20120608
  Serious: Yes (Other)
  Sender: FDA-Public Use
  Company Number: None

PATIENT
  Age: 39 Year
  Sex: Female
  Weight: 46.72 kg

DRUGS (1)
  1. LEVAQUIN [Suspect]
     Indication: PHARYNGITIS STREPTOCOCCAL
     Dosage: 500MG
     Route: 048
     Dates: start: 20111118, end: 20111128

REACTIONS (4)
  - ARTHRALGIA [None]
  - LIGAMENT PAIN [None]
  - TENDON PAIN [None]
  - ASTHENIA [None]
